FAERS Safety Report 8319299-4 (Version None)
Quarter: 2012Q2

REPORT INFORMATION
  Report Type: 
  Country: None (occurrence: None)
  Receive Date: 20120427
  Receipt Date: 20120416
  Transmission Date: 20120825
  Serious: Yes (Other)
  Sender: FDA-Public Use
  Company Number: US-JNJFOC-20101002914

PATIENT
  Sex: Male

DRUGS (19)
  1. RISPERDAL CONSTA [Suspect]
     Indication: MAJOR DEPRESSION
     Route: 030
     Dates: start: 20100401, end: 20100801
  2. RISPERDAL CONSTA [Suspect]
     Indication: BIPOLAR DISORDER
     Route: 030
     Dates: start: 20090101
  3. RISPERDAL CONSTA [Suspect]
     Indication: SCHIZOPHRENIA, PARANOID TYPE
     Dosage: NDC 050468-306
     Route: 030
     Dates: start: 20100407, end: 20110202
  4. INVEGA [Suspect]
     Indication: SCHIZOPHRENIA, PARANOID TYPE
     Route: 048
     Dates: start: 20080501, end: 20091101
  5. ZYPREXA [Suspect]
     Indication: SCHIZOPHRENIA
     Route: 065
  6. RISPERDAL CONSTA [Suspect]
     Dosage: EVERY 4 TO 6 WEEKS
     Route: 030
     Dates: start: 20100101, end: 20100101
  7. RISPERDAL CONSTA [Suspect]
     Route: 030
     Dates: start: 20100501, end: 20101001
  8. RISPERDAL CONSTA [Suspect]
     Dosage: EVERY 4 TO 6 WEEKS
     Route: 030
     Dates: start: 20100101, end: 20100101
  9. RISPERDAL CONSTA [Suspect]
     Route: 030
     Dates: start: 20090101
  10. RISPERDAL CONSTA [Suspect]
     Route: 030
     Dates: start: 20100401, end: 20100801
  11. RISPERDAL [Suspect]
     Indication: SCHIZOPHRENIA, PARANOID TYPE
     Route: 048
     Dates: start: 20100707, end: 20110202
  12. COGENTIN [Suspect]
     Indication: PRODUCT USED FOR UNKNOWN INDICATION
     Route: 048
     Dates: start: 20111211
  13. RISPERDAL CONSTA [Suspect]
     Route: 030
     Dates: start: 20100501, end: 20101001
  14. RISPERDAL CONSTA [Suspect]
     Route: 030
     Dates: start: 20100401, end: 20100801
  15. RISPERDAL CONSTA [Suspect]
     Route: 030
     Dates: start: 20090101
  16. RISPERDAL CONSTA [Suspect]
     Dosage: NDC 050468-306
     Route: 030
     Dates: start: 20100407, end: 20110202
  17. RISPERDAL CONSTA [Suspect]
     Dosage: EVERY 4 TO 6 WEEKS
     Route: 030
     Dates: start: 20100101, end: 20100101
  18. RISPERDAL CONSTA [Suspect]
     Route: 030
     Dates: start: 20100501, end: 20101001
  19. RISPERDAL CONSTA [Suspect]
     Dosage: NDC 050468-306
     Route: 030
     Dates: start: 20100407, end: 20110202

REACTIONS (24)
  - MUSCLE TWITCHING [None]
  - CONDITION AGGRAVATED [None]
  - BACK PAIN [None]
  - GAIT DISTURBANCE [None]
  - HYPERTENSION [None]
  - ABNORMAL BEHAVIOUR [None]
  - GRIMACING [None]
  - WEIGHT DECREASED [None]
  - DEPRESSION [None]
  - MUSCLE TIGHTNESS [None]
  - MOVEMENT DISORDER [None]
  - TORTICOLLIS [None]
  - EXTRAPYRAMIDAL DISORDER [None]
  - TARDIVE DYSKINESIA [None]
  - NECK PAIN [None]
  - MUSCLE SPASMS [None]
  - PAIN [None]
  - DYSPHAGIA [None]
  - ADVERSE EVENT [None]
  - DRUG INEFFECTIVE [None]
  - DISSOCIATION [None]
  - MUSCULOSKELETAL DISORDER [None]
  - DYSTONIA [None]
  - INAPPROPRIATE SCHEDULE OF DRUG ADMINISTRATION [None]
